FAERS Safety Report 4892896-4 (Version None)
Quarter: 2005Q4

REPORT INFORMATION
  Report Type: 
  Country: None (occurrence: None)
  Receive Date: 20051220
  Receipt Date: 20050909
  Transmission Date: 20060501
  Serious: Yes (Other)
  Sender: FDA-Public Use
  Company Number: 417466

PATIENT
  Sex: Female

DRUGS (1)
  1. BONIVA [Suspect]
     Indication: DRUG USE FOR UNKNOWN INDICATION
     Dosage: 150MG ORAL
     Route: 048
     Dates: start: 20050821

REACTIONS (4)
  - DIARRHOEA [None]
  - DYSPEPSIA [None]
  - PALPITATIONS [None]
  - PARAESTHESIA [None]
